FAERS Safety Report 24782519 (Version 2)
Quarter: 2025Q1

REPORT INFORMATION
  Report Type: Spontaneous
  Country: DE (occurrence: DE)
  Receive Date: 20241227
  Receipt Date: 20250113
  Transmission Date: 20250408
  Serious: Yes (Other)
  Sender: LUPIN
  Company Number: DE-LUPIN EUROPE GMBH-2024-12439

PATIENT

DRUGS (2)
  1. TOPIRAMATE [Suspect]
     Active Substance: TOPIRAMATE
     Indication: Vestibular migraine
     Dosage: 1 DOSAGE FORM, QD (ONE PILL IN THE EVENING)
     Route: 065
     Dates: start: 20241212
  2. VENLAFAXINE [Concomitant]
     Active Substance: VENLAFAXINE HYDROCHLORIDE
     Indication: Product used for unknown indication
     Route: 065

REACTIONS (3)
  - Dyspnoea at rest [Unknown]
  - Disturbance in attention [Unknown]
  - Dizziness [Unknown]

NARRATIVE: CASE EVENT DATE: 20241213
